FAERS Safety Report 6192186-6 (Version None)
Quarter: 2009Q2

REPORT INFORMATION
  Report Type: 
  Country: None (occurrence: None)
  Receive Date: 20090515
  Receipt Date: 20090506
  Transmission Date: 20091009
  Serious: Yes (Other)
  Sender: FDA-Public Use
  Company Number: GB-ELI_LILLY_AND_COMPANY-GB200905001550

PATIENT
  Age: 59 Year
  Sex: Male

DRUGS (2)
  1. BYETTA [Suspect]
     Dosage: 5 MG, UNK
  2. BYETTA [Suspect]
     Dosage: 10 MG, UNK
     Dates: start: 20090401

REACTIONS (1)
  - ANGINA PECTORIS [None]
